FAERS Safety Report 11932034 (Version 1)
Quarter: 2016Q1

REPORT INFORMATION
  Report Type: Spontaneous
  Country: US (occurrence: US)
  Receive Date: 20160120
  Receipt Date: 20160120
  Transmission Date: 20160526
  Serious: No
  Sender: FDA-Public Use
  Company Number: US-PFIZER INC-2015467975

PATIENT
  Age: 54 Year
  Sex: Female

DRUGS (1)
  1. TIKOSYN [Suspect]
     Active Substance: DOFETILIDE
     Indication: ARRHYTHMIA
     Dosage: 250 MICROGRAM, CAPSULES, TWICE A DAY
     Route: 048
     Dates: start: 201510

REACTIONS (4)
  - Malaise [Recovering/Resolving]
  - Confusional state [Recovering/Resolving]
  - International normalised ratio fluctuation [Unknown]
  - Blood potassium abnormal [Unknown]

NARRATIVE: CASE EVENT DATE: 201510
